FAERS Safety Report 6656697-9 (Version None)
Quarter: 2010Q1

REPORT INFORMATION
  Report Type: 
  Country: None (occurrence: None)
  Receive Date: 20100324
  Receipt Date: 20100308
  Transmission Date: 20100710
  Serious: Yes (Hospitalization)
  Sender: FDA-Public Use
  Company Number: TPA2010A01044

PATIENT
  Age: 69 Year
  Sex: Male
  Weight: 70.3075 kg

DRUGS (10)
  1. ACTOS [Suspect]
     Indication: TYPE 2 DIABETES MELLITUS
     Dosage: 15 MG, 1 IN 1 D, PER ORAL; 30 MG, 1 IN 1 D, PER ORAL
     Route: 048
     Dates: start: 20100115, end: 20100215
  2. ACTOS [Suspect]
     Indication: TYPE 2 DIABETES MELLITUS
     Dosage: 15 MG, 1 IN 1 D, PER ORAL; 30 MG, 1 IN 1 D, PER ORAL
     Route: 048
     Dates: start: 20100215, end: 20100218
  3. LEVEMIR [Concomitant]
  4. ASPIRIN [Concomitant]
  5. CENTRUM MULTIVITAMIN (VITAMINS NOS, MINERALS NOS) [Concomitant]
  6. VITAMIN D [Concomitant]
  7. METFORMIN HCL [Concomitant]
  8. LEVOTHROXINE (LEVOTHROXINE) [Concomitant]
  9. SERTRLINE (SERTRALINE) [Concomitant]
  10. SIMVASTATIN [Concomitant]

REACTIONS (3)
  - BLOOD GLUCOSE INCREASED [None]
  - REFUSAL OF TREATMENT BY PATIENT [None]
  - SYNCOPE [None]
